FAERS Safety Report 6286813-2 (Version None)
Quarter: 2009Q3

REPORT INFORMATION
  Report Type: 
  Country: None (occurrence: None)
  Receive Date: 20090716
  Receipt Date: 20080521
  Transmission Date: 20100115
  Serious: Yes (Other)
  Sender: FDA-Public Use
  Company Number: 2008BI013045

PATIENT
  Age: 49 Year
  Sex: Female
  Weight: 70.3075 kg

DRUGS (4)
  1. AVONEX [Suspect]
     Indication: MULTIPLE SCLEROSIS
     Dosage: 30 UG;QW;IM
     Route: 030
     Dates: start: 20031001
  2. NEURONTIN [Concomitant]
  3. CORTICOSTEROID [Concomitant]
  4. PREV MEDS [Concomitant]

REACTIONS (10)
  - CATARACT [None]
  - COGNITIVE DISORDER [None]
  - COMPLEX PARTIAL SEIZURES [None]
  - CONVULSION [None]
  - FATIGUE [None]
  - GAIT DISTURBANCE [None]
  - GLAUCOMA [None]
  - OSTEOPOROSIS [None]
  - PAIN [None]
  - PHOTOSENSITIVITY REACTION [None]
